FAERS Safety Report 4485056-2 (Version None)
Quarter: 2004Q4

REPORT INFORMATION
  Report Type: 
  Country: None (occurrence: None)
  Receive Date: 20041022
  Receipt Date: 20041022
  Transmission Date: 20050328
  Serious: Yes (Hospitalization)
  Sender: FDA-Public Use
  Company Number: None

PATIENT
  Age: 83 Year
  Sex: Female

DRUGS (2)
  1. FORTAZ [Suspect]
     Dosage: 2 GM Q 12 HR INTRAVENOU
     Route: 042
     Dates: start: 20040929, end: 20041011
  2. TOBRAMYCIN [Suspect]
     Dosage: 100 MG Q 24 HR INTRAVENOUS
     Route: 042
     Dates: start: 20040929, end: 20041012

REACTIONS (1)
  - DRUG HYPERSENSITIVITY [None]
